FAERS Safety Report 21337635 (Version 1)
Quarter: 2022Q3

REPORT INFORMATION
  Report Type: Spontaneous
  Country: FR (occurrence: FR)
  Receive Date: 20220915
  Receipt Date: 20220915
  Transmission Date: 20221027
  Serious: Yes (Hospitalization)
  Sender: FDA-Public Use
  Company Number: None

PATIENT
  Age: 29 Year
  Sex: Male

DRUGS (4)
  1. BUPRENORPHINE [Suspect]
     Active Substance: BUPRENORPHINE
     Dosage: NON RENSEIGN?
     Dates: start: 20220810, end: 20220810
  2. CANNABIS SATIVA SUBSP. INDICA TOP [Suspect]
     Active Substance: CANNABIS SATIVA SUBSP. INDICA TOP
     Dosage: NON RENSEIGN?
     Route: 055
     Dates: start: 2022
  3. UNSPECIFIED INGREDIENT [Suspect]
     Active Substance: UNSPECIFIED INGREDIENT
     Dosage: NON RENSEIGN?
     Dates: start: 20220810, end: 20220810
  4. BENZODIAZEPINE [Suspect]
     Active Substance: BENZODIAZEPINE
     Dosage: NON RENSEIGN?
     Dates: start: 20220810, end: 20220810

REACTIONS (4)
  - Pneumonia [Recovering/Resolving]
  - Drug abuse [Unknown]
  - Chest pain [Recovered/Resolved]
  - Loss of consciousness [Recovered/Resolved]

NARRATIVE: CASE EVENT DATE: 20140101
